FAERS Safety Report 25756165 (Version 2)
Quarter: 2025Q4

REPORT INFORMATION
  Report Type: Spontaneous
  Country: JP (occurrence: JP)
  Receive Date: 20250903
  Receipt Date: 20251231
  Transmission Date: 20260117
  Serious: Yes (Death, Life-Threatening, Hospitalization, Other)
  Sender: UNITED THERAPEUTICS
  Company Number: JP-UNITED THERAPEUTICS-UNT-2025-021326

PATIENT
  Sex: Female

DRUGS (21)
  1. TREPROSTINIL [Suspect]
     Active Substance: TREPROSTINIL
     Indication: Pulmonary hypertension
     Dosage: 18 ?G, QID
     Dates: start: 20250404, end: 20250412
  2. TREPROSTINIL [Suspect]
     Active Substance: TREPROSTINIL
     Dosage: 36 ?G, QID
     Dates: start: 20250413, end: 20250427
  3. TREPROSTINIL [Suspect]
     Active Substance: TREPROSTINIL
     Dosage: UNK
     Dates: start: 20250428, end: 20250430
  4. TREPROSTINIL [Suspect]
     Active Substance: TREPROSTINIL
     Dosage: 48 ?G, QID
     Dates: start: 20250501, end: 20250503
  5. TREPROSTINIL [Suspect]
     Active Substance: TREPROSTINIL
     Dosage: 54 ?G, QID
     Dates: start: 20250504, end: 20250525
  6. TREPROSTINIL [Suspect]
     Active Substance: TREPROSTINIL
     Dosage: 42 ?G, QID
     Dates: start: 20250526, end: 2025
  7. ADRENAL [Suspect]
     Active Substance: EPINEPHRINE
     Indication: Product used for unknown indication
     Dosage: UNK
  8. MACITENTAN [Concomitant]
     Active Substance: MACITENTAN
     Indication: Pulmonary hypertension
     Dosage: 10 MG, QD
  9. RIOCIGUAT [Concomitant]
     Active Substance: RIOCIGUAT
     Indication: Pulmonary hypertension
     Dosage: 2.5 MG, Q8H
  10. SELEXIPAG [Concomitant]
     Active Substance: SELEXIPAG
     Indication: Pulmonary hypertension
     Dosage: 1.4 MG, Q12H
  11. FUROSEMIDE [Concomitant]
     Active Substance: FUROSEMIDE
     Indication: Pulmonary hypertension
     Dosage: 20 MG, QD
  12. TOLVAPTAN [Concomitant]
     Active Substance: TOLVAPTAN
     Indication: Pulmonary hypertension
     Dosage: 7.5 MG, QD
  13. PREDONINE [Concomitant]
     Active Substance: PREDNISOLONE
     Indication: Interstitial lung disease
     Dosage: UNK, QD
  14. MYCOPHENOLATE MOFETIL [Concomitant]
     Active Substance: MYCOPHENOLATE MOFETIL
     Indication: Mixed connective tissue disease
     Dosage: 1250 MG, Q12H
  15. ESOMEPRAZOLE [Concomitant]
     Active Substance: ESOMEPRAZOLE
     Indication: Gastrooesophageal reflux disease
     Dosage: 20 MG, QD
  16. SULFAMETHOXAZOLE\TRIMETHOPRIM [Concomitant]
     Active Substance: SULFAMETHOXAZOLE\TRIMETHOPRIM
     Indication: Prophylaxis
     Dosage: 1DF/DAY
  17. ALFACALCIDOL [Concomitant]
     Active Substance: ALFACALCIDOL
     Indication: Osteoporosis
     Dosage: 0.5 MG, QD
  18. CELECOXIB [Concomitant]
     Active Substance: CELECOXIB
     Indication: Compression fracture
     Dosage: 200 MG, Q12H
     Dates: start: 20250512
  19. REBAMIPIDE [Concomitant]
     Active Substance: REBAMIPIDE
     Indication: Compression fracture
     Dosage: 100 MG, Q12H
     Dates: start: 20250512
  20. LEVOFLOXACIN HEMIHYDRATE [Concomitant]
     Active Substance: LEVOFLOXACIN
     Indication: Cholecystitis
     Dosage: 250 MG, QD
     Dates: start: 20250616
  21. TACROLIMUS [Concomitant]
     Active Substance: TACROLIMUS
     Indication: Mixed connective tissue disease
     Dosage: 3 MG, QD

REACTIONS (5)
  - Acute respiratory failure [Fatal]
  - Cholecystitis acute [Not Recovered/Not Resolved]
  - Depressed level of consciousness [Unknown]
  - Compression fracture [Recovered/Resolved]
  - Anaemia [Unknown]

NARRATIVE: CASE EVENT DATE: 20250101
